FAERS Safety Report 24922568 (Version 1)
Quarter: 2025Q1

REPORT INFORMATION
  Report Type: Spontaneous
  Country: US (occurrence: None)
  Receive Date: 20250204
  Receipt Date: 20250204
  Transmission Date: 20250408
  Serious: Yes (Other)
  Sender: FDA-CTU
  Company Number: None

PATIENT
  Age: 43 Year
  Sex: Male
  Weight: 132.75 kg

DRUGS (5)
  1. ATENOLOL [Suspect]
     Active Substance: ATENOLOL
     Indication: Hypertension
     Dosage: OTHER QUANTITY : 1 TABLET(S);?FREQUENCY : DAILY;?
     Route: 048
     Dates: start: 20250203
  2. ATENOLOL [Concomitant]
     Active Substance: ATENOLOL
  3. LORAZEPAM [Concomitant]
     Active Substance: LORAZEPAM
  4. DEVICE [Concomitant]
     Active Substance: DEVICE
  5. VITAMINS [Concomitant]
     Active Substance: VITAMINS

REACTIONS (9)
  - Product dispensing error [None]
  - Incorrect dose administered [None]
  - Accidental overdose [None]
  - Dizziness [None]
  - Balance disorder [None]
  - Fall [None]
  - Fatigue [None]
  - Dizziness [None]
  - Somnolence [None]

NARRATIVE: CASE EVENT DATE: 20250203
